FAERS Safety Report 24771445 (Version 1)
Quarter: 2024Q4

REPORT INFORMATION
  Report Type: Spontaneous
  Country: US (occurrence: US)
  Receive Date: 20241224
  Receipt Date: 20241224
  Transmission Date: 20250114
  Serious: Yes (Other)
  Sender: PFIZER
  Company Number: US-PFIZER INC-202400324340

PATIENT
  Age: 81 Year
  Sex: Male
  Weight: 86.168 kg

DRUGS (2)
  1. TALZENNA [Suspect]
     Active Substance: TALAZOPARIB TOSYLATE
     Indication: Prostate cancer metastatic
     Dosage: 1 P.O.Q. (PER ORAL EVERY) DAY WITH OR WITHOUT FOOD
     Route: 048
  2. ENZALUTAMIDE [Concomitant]
     Active Substance: ENZALUTAMIDE
     Indication: Prostate cancer metastatic
     Dosage: UNK

REACTIONS (3)
  - Iron deficiency anaemia [Unknown]
  - Acute kidney injury [Unknown]
  - Benign prostatic hyperplasia [Unknown]
